FAERS Safety Report 14036408 (Version 1)
Quarter: 2017Q4

REPORT INFORMATION
  Report Type: Spontaneous
  Country: US (occurrence: US)
  Receive Date: 20171003
  Receipt Date: 20171003
  Transmission Date: 20180321
  Serious: No
  Sender: FDA-Public Use
  Company Number: US-ROCHE-1997303

PATIENT
  Sex: Male
  Weight: 64.47 kg

DRUGS (3)
  1. OCREVUS [Suspect]
     Active Substance: OCRELIZUMAB
     Indication: MULTIPLE SCLEROSIS
     Dosage: DAY 1, DAY 14, THEN EVERY 6 MONTHS
     Route: 042
     Dates: start: 20170912
  2. XANAX [Concomitant]
     Active Substance: ALPRAZOLAM
     Indication: NAUSEA
     Route: 065
  3. MECLIZINE [Concomitant]
     Active Substance: MECLIZINE HYDROCHLORIDE
     Indication: NAUSEA
     Route: 065

REACTIONS (1)
  - Nausea [Not Recovered/Not Resolved]
